FAERS Safety Report 13614313 (Version 1)
Quarter: 2017Q2

REPORT INFORMATION
  Report Type: Spontaneous
  Country: US (occurrence: US)
  Receive Date: 20170606
  Receipt Date: 20170606
  Transmission Date: 20170830
  Serious: No
  Sender: FDA-Public Use
  Company Number: US-TEVA-709045USA

PATIENT
  Sex: Female
  Weight: 69.92 kg

DRUGS (5)
  1. BUPRENORPHINE HCL [Suspect]
     Active Substance: BUPRENORPHINE HYDROCHLORIDE
     Dosage: 300 MILLIGRAM DAILY;
  2. BUPRENORPHINE HCL [Suspect]
     Active Substance: BUPRENORPHINE HYDROCHLORIDE
     Indication: INSOMNIA
     Dosage: 300 MILLIGRAM DAILY;
     Dates: start: 20160713
  3. BUPRENORPHINE HCL [Suspect]
     Active Substance: BUPRENORPHINE HYDROCHLORIDE
     Dosage: 200 MILLIGRAM DAILY;
  4. BUPRENORPHINE HCL [Suspect]
     Active Substance: BUPRENORPHINE HYDROCHLORIDE
     Dosage: 150 MILLIGRAM DAILY;
  5. BUPRENORPHINE HCL [Suspect]
     Active Substance: BUPRENORPHINE HYDROCHLORIDE
     Dosage: 100 MILLIGRAM DAILY;

REACTIONS (6)
  - Headache [Recovering/Resolving]
  - Nervousness [Unknown]
  - Insomnia [Unknown]
  - Myalgia [Recovered/Resolved]
  - Product use in unapproved indication [Unknown]
  - Off label use [None]

NARRATIVE: CASE EVENT DATE: 2016
